FAERS Safety Report 6824840-4 (Version None)
Quarter: 2010Q3

REPORT INFORMATION
  Report Type: 
  Country: None (occurrence: None)
  Receive Date: 20100708
  Receipt Date: 20061206
  Transmission Date: 20110219
  Serious: No
  Sender: FDA-Public Use
  Company Number: US-PFIZER INC-2006153567

PATIENT
  Sex: Male
  Weight: 68.04 kg

DRUGS (10)
  1. CHANTIX [Suspect]
     Indication: SMOKING CESSATION THERAPY
     Route: 048
     Dates: start: 20061129
  2. OXYCONTIN [Concomitant]
  3. LIPITOR [Concomitant]
  4. XALATAN [Concomitant]
     Indication: GLAUCOMA
  5. LISINOPRIL [Concomitant]
  6. VOLTAREN [Concomitant]
  7. VIAGRA [Concomitant]
  8. TESTOSTERONE [Concomitant]
  9. PERCOCET [Concomitant]
  10. ACTONEL [Concomitant]

REACTIONS (4)
  - ACCIDENT AT HOME [None]
  - NAUSEA [None]
  - NIGHTMARE [None]
  - VOMITING [None]
